FAERS Safety Report 4886907-X (Version None)
Quarter: 2006Q1

REPORT INFORMATION
  Report Type: 
  Country: None (occurrence: None)
  Receive Date: 20060119
  Receipt Date: 20050101
  Transmission Date: 20060701
  Serious: Yes (Death)
  Sender: FDA-Public Use
  Company Number: CNL-121415-NL

PATIENT
  Age: 83 Year
  Sex: Male

DRUGS (4)
  1. ORGARAN [Suspect]
     Indication: PROPHYLAXIS
     Dosage: 2250 ANTI_XA INTRAVENOUS (NOS)
     Route: 042
  2. HEPARIN [Concomitant]
  3. AMIODARONE HCL [Concomitant]
  4. LEPIRUDIN [Concomitant]

REACTIONS (7)
  - DEEP VEIN THROMBOSIS [None]
  - HAEMODIALYSIS [None]
  - HEPARIN-INDUCED THROMBOCYTOPENIA [None]
  - PHLEBITIS [None]
  - PULMONARY HAEMORRHAGE [None]
  - RENAL FAILURE ACUTE [None]
  - SHOCK [None]
